FAERS Safety Report 21510111 (Version 1)
Quarter: 2022Q4

REPORT INFORMATION
  Report Type: Report from Study
  Country: AU (occurrence: AU)
  Receive Date: 20221026
  Receipt Date: 20221026
  Transmission Date: 20230113
  Serious: Yes (Other)
  Sender: FDA-Public Use
  Company Number: AU-ABBVIE-20P-008-3691747-00

PATIENT
  Sex: Male
  Weight: 40 kg

DRUGS (2)
  1. ADALIMUMAB [Suspect]
     Active Substance: ADALIMUMAB
     Indication: Lupus-like syndrome
     Route: 058
  2. HUMIRA [Suspect]
     Active Substance: ADALIMUMAB
     Indication: Product used for unknown indication
     Route: 058

REACTIONS (4)
  - Hepatic cirrhosis [Unknown]
  - Portal hypertension [Unknown]
  - Pernicious anaemia [Unknown]
  - Hypersplenism [Unknown]
